FAERS Safety Report 16410317 (Version 1)
Quarter: 2019Q3

REPORT INFORMATION
  Report Type: Spontaneous
  Country: US (occurrence: US)
  Receive Date: 20190607
  Receipt Date: 20190607
  Transmission Date: 20191004
  Serious: Yes (Hospitalization)
  Sender: FDA-Public Use
  Company Number: None

PATIENT
  Age: 21 Year
  Sex: Female

DRUGS (6)
  1. DROSPIRENONE [Concomitant]
     Active Substance: DROSPIRENONE
     Dates: start: 20190318
  2. SERTRALINE [Concomitant]
     Active Substance: SERTRALINE HYDROCHLORIDE
     Dates: start: 20190606
  3. ASPIRIN. [Concomitant]
     Active Substance: ASPIRIN
     Dates: start: 20181112
  4. NORETHINDRON [Concomitant]
     Dates: start: 20190606
  5. GLATIRAMER [Suspect]
     Active Substance: GLATIRAMER
     Indication: MULTIPLE SCLEROSIS
     Dosage: ?          OTHER FREQUENCY:3 TIMES PER WEEK;?
     Route: 058
     Dates: start: 20181114
  6. ZOLOFT [Concomitant]
     Active Substance: SERTRALINE HYDROCHLORIDE
     Dates: start: 20190607

REACTIONS (5)
  - Multiple sclerosis relapse [None]
  - Hypoaesthesia [None]
  - Vision blurred [None]
  - Vertigo [None]
  - Urticaria [None]

NARRATIVE: CASE EVENT DATE: 20190607
